FAERS Safety Report 20577697 (Version 1)
Quarter: 2022Q1

REPORT INFORMATION
  Report Type: Spontaneous
  Country: IN (occurrence: IN)
  Receive Date: 20220310
  Receipt Date: 20220310
  Transmission Date: 20220423
  Serious: Yes (Other)
  Sender: FDA-Public Use
  Company Number: IN-PFIZER INC-202101620072

PATIENT
  Age: 67 Year
  Sex: Female

DRUGS (4)
  1. PALBOCICLIB [Suspect]
     Active Substance: PALBOCICLIB
     Dosage: 125 MG, CYCLIC (D1 TO D21 THEN 7DAYS OFF)
     Route: 048
     Dates: start: 20210301, end: 20220223
  2. PAN [Concomitant]
     Dosage: UNK UNK, 1X/DAY
  3. CALCIUM CARBONATE\CHOLECALCIFEROL [Concomitant]
     Active Substance: CALCIUM CARBONATE\CHOLECALCIFEROL
     Dosage: UNK, 1X/DAY
  4. ZOLEDRONIC ACID [Concomitant]
     Active Substance: ZOLEDRONIC ACID

REACTIONS (5)
  - Ascites [Unknown]
  - Product use issue [Unknown]
  - Pain [Unknown]
  - White blood cell count decreased [Unknown]
  - Neutrophil count decreased [Unknown]
